FAERS Safety Report 13015692 (Version 2)
Quarter: 2016Q4

REPORT INFORMATION
  Report Type: Report from Study
  Country: DE (occurrence: DE)
  Receive Date: 20161212
  Receipt Date: 20161215
  Transmission Date: 20170207
  Serious: Yes (Other)
  Sender: FDA-Public Use
  Company Number: DE-INCYTE CORPORATION-2016IN004366

PATIENT
  Age: 77 Year
  Sex: Male
  Weight: 72 kg

DRUGS (9)
  1. INCB018424 [Suspect]
     Active Substance: RUXOLITINIB
     Dosage: 10 MG, BID  (2 DF PER DAY)
     Route: 048
     Dates: start: 20160412, end: 20160615
  2. INCB018424 [Suspect]
     Active Substance: RUXOLITINIB
     Dosage: 15 MG, QD (1 DF  OF A 10 MG + 1 DF OF A 5 MG)
     Route: 048
     Dates: start: 20160616
  3. OMEPRAZOLE. [Concomitant]
     Active Substance: OMEPRAZOLE
     Indication: BARRETT^S OESOPHAGUS
     Dosage: 20 MG, QD
     Route: 065
     Dates: start: 20080423, end: 20160417
  4. INCB018424 [Suspect]
     Active Substance: RUXOLITINIB
     Dosage: 5 MG, BID (2 DF PER DAY)
     Route: 048
     Dates: start: 20160223
  5. INCB018424 [Suspect]
     Active Substance: RUXOLITINIB
     Dosage: 10 MG, BID (2 DF PER DAY)
     Route: 048
     Dates: start: 20160922
  6. ALLOPURINOL. [Concomitant]
     Active Substance: ALLOPURINOL
     Indication: PROPHYLAXIS
     Dosage: 300 MG, QD
     Route: 065
     Dates: start: 1995
  7. DULOXETINE. [Concomitant]
     Active Substance: DULOXETINE
     Indication: POLYNEUROPATHY
     Dosage: 20 MG, QD
     Route: 065
     Dates: start: 20151005, end: 20160115
  8. ESOMEPRAZOLE [Concomitant]
     Active Substance: ESOMEPRAZOLE
     Indication: OESOPHAGITIS
     Dosage: 40 MG, QD
     Route: 065
     Dates: start: 20160418
  9. INCB018424 [Suspect]
     Active Substance: RUXOLITINIB
     Indication: MYELOFIBROSIS
     Dosage: 3 DF, QD DAY (IN TOTAL 12.5 MG PER DAY)
     Route: 048
     Dates: start: 20151116

REACTIONS (5)
  - Concomitant disease aggravated [Recovering/Resolving]
  - Splenomegaly [Recovering/Resolving]
  - Basal cell carcinoma [Recovering/Resolving]
  - Second primary malignancy [Recovering/Resolving]
  - Squamous cell carcinoma of skin [Not Recovered/Not Resolved]

NARRATIVE: CASE EVENT DATE: 201603
